FAERS Safety Report 13195681 (Version 1)
Quarter: 2017Q1

REPORT INFORMATION
  Report Type: Spontaneous
  Country: GB (occurrence: GB)
  Receive Date: 20170208
  Receipt Date: 20170208
  Transmission Date: 20170428
  Serious: Yes (Disabling)
  Sender: FDA-Public Use
  Company Number: GB-ACCORD-047945

PATIENT
  Age: 49 Year
  Sex: Female
  Weight: 72.11 kg

DRUGS (5)
  1. ESCITALOPRAM [Concomitant]
     Active Substance: ESCITALOPRAM OXALATE
  2. PARACETAMOL [Concomitant]
     Active Substance: ACETAMINOPHEN
     Dosage: FOUR TIMES A DAY. TAKEN WITH TRAMADOL.
  3. ACCORD TRAMADOL [Suspect]
     Active Substance: TRAMADOL
     Indication: ANALGESIC THERAPY
     Dosage: FOUR TIMES A DAY. ORIGINALLY REDUCED TO A MAXIMUM OF 2 PER DAY.
     Route: 048
     Dates: start: 20161227, end: 20161229
  4. LACTULOSE. [Concomitant]
     Active Substance: LACTULOSE
  5. PROPRANOLOL [Concomitant]
     Active Substance: PROPRANOLOL HYDROCHLORIDE

REACTIONS (5)
  - Pain [Recovered/Resolved]
  - Thirst [Recovered/Resolved]
  - Product quality issue [Unknown]
  - Hyperhidrosis [Recovered/Resolved]
  - Suspected counterfeit product [Unknown]

NARRATIVE: CASE EVENT DATE: 20161227
